FAERS Safety Report 8511499-3 (Version None)
Quarter: 2012Q3

REPORT INFORMATION
  Report Type: 
  Country: None (occurrence: None)
  Receive Date: 20120710
  Receipt Date: 20120710
  Transmission Date: 20120928
  Serious: Yes (Disabling)
  Sender: FDA-Public Use
  Company Number: None

PATIENT
  Sex: Female

DRUGS (1)
  1. TRIAMCINOLONE [Suspect]
     Indication: CYSTOID MACULAR OEDEMA
     Dates: start: 20111230, end: 20120103

REACTIONS (5)
  - PSEUDOENDOPHTHALMITIS [None]
  - REFUSAL OF TREATMENT BY PATIENT [None]
  - VISUAL ACUITY REDUCED [None]
  - VITREOUS FLOATERS [None]
  - HYPHAEMA [None]
